FAERS Safety Report 19690911 (Version 1)
Quarter: 2021Q3

REPORT INFORMATION
  Report Type: Spontaneous
  Country: US (occurrence: US)
  Receive Date: 20210812
  Receipt Date: 20210812
  Transmission Date: 20211014
  Serious: No
  Sender: FDA-Public Use
  Company Number: US-PFIZER INC-2021900163

PATIENT
  Age: 51 Year
  Sex: Female
  Weight: 113.38 kg

DRUGS (29)
  1. METFORMIN HCL [Concomitant]
     Active Substance: METFORMIN HYDROCHLORIDE
  2. ASPIRIN EC [Concomitant]
     Active Substance: ASPIRIN
  3. LEVOXYL [Concomitant]
     Active Substance: LEVOTHYROXINE SODIUM
  4. MECLIZINE HCL [Concomitant]
     Active Substance: MECLIZINE HYDROCHLORIDE
  5. METAMUCIL REGULAR [Concomitant]
     Active Substance: HERBALS\PLANTAGO OVATA LEAF
  6. YASMIN [Concomitant]
     Active Substance: DROSPIRENONE\ETHINYL ESTRADIOL
  7. BOSULIF [Suspect]
     Active Substance: BOSUTINIB MONOHYDRATE
     Dosage: 500 MG, DAILY
     Route: 048
  8. CYCLOBENZAPRINE HCL [Concomitant]
     Active Substance: CYCLOBENZAPRINE HYDROCHLORIDE
  9. FAMOTIDINE. [Concomitant]
     Active Substance: FAMOTIDINE
  10. KRILL OIL [Concomitant]
     Active Substance: DIETARY SUPPLEMENT\KRILL OIL
  11. LEXAPRO [Concomitant]
     Active Substance: ESCITALOPRAM OXALATE
  12. LYRICA [Concomitant]
     Active Substance: PREGABALIN
  13. SINGULAIR [Concomitant]
     Active Substance: MONTELUKAST SODIUM
  14. CALCIUM CARBONATE. [Concomitant]
     Active Substance: CALCIUM CARBONATE
  15. TRAZODONE [Concomitant]
     Active Substance: TRAZODONE HYDROCHLORIDE
  16. TYLENOL [Concomitant]
     Active Substance: ACETAMINOPHEN
  17. NEOSYNEPHRINE [Concomitant]
     Active Substance: PHENYLEPHRINE HYDROCHLORIDE
  18. ROBAXIN [Concomitant]
     Active Substance: METHOCARBAMOL
  19. PERCOCET [OXYCODONE HYDROCHLORIDE;OXYCODONE TEREPHTHALATE;PARACETAMOL] [Concomitant]
     Active Substance: ACETAMINOPHEN\OXYCODONE HYDROCHLORIDE\OXYCODONE TEREPHTHALATE
  20. PROBIOTICS [Concomitant]
     Active Substance: PROBIOTICS NOS
  21. ALLEGRA ALLERGY [Concomitant]
     Active Substance: FEXOFENADINE HYDROCHLORIDE
  22. BUPROPION HCL [Concomitant]
     Active Substance: BUPROPION HYDROCHLORIDE
  23. ATIVAN [Concomitant]
     Active Substance: LORAZEPAM
  24. MELATONIN [Concomitant]
     Active Substance: MELATONIN
  25. FEROSUL [Suspect]
     Active Substance: FERROUS SULFATE
  26. ALKA?SELTZER [Concomitant]
     Active Substance: ANHYDROUS CITRIC ACID\ASPIRIN\SODIUM BICARBONATE
  27. MAGNESIUM OXIDE. [Concomitant]
     Active Substance: MAGNESIUM OXIDE
  28. METRONIDAZOLE. [Concomitant]
     Active Substance: METRONIDAZOLE
  29. NEOSPORIN [Concomitant]
     Active Substance: BACITRACIN ZINC\NEOMYCIN SULFATE\POLYMYXIN B SULFATE

REACTIONS (2)
  - Photosensitivity reaction [Unknown]
  - Sunburn [Unknown]
